FAERS Safety Report 8627406 (Version 4)
Quarter: 2013Q2

REPORT INFORMATION
  Report Type: Spontaneous
  Country: CA (occurrence: CA)
  Receive Date: 20120621
  Receipt Date: 20130603
  Transmission Date: 20140414
  Serious: Yes (Other)
  Sender: FDA-Public Use
  Company Number: CA-JNJFOC-20120605993

PATIENT
  Age: 36 Year
  Sex: Female
  Weight: 71 kg

DRUGS (12)
  1. REMICADE [Suspect]
     Indication: CROHN^S DISEASE
     Route: 042
     Dates: end: 20120620
  2. REMICADE [Suspect]
     Indication: CROHN^S DISEASE
     Route: 042
     Dates: start: 20120611
  3. REMICADE [Suspect]
     Indication: CROHN^S DISEASE
     Route: 042
     Dates: start: 201203
  4. PRISTIQ [Concomitant]
     Route: 065
  5. M.S.CONTIN [Concomitant]
     Route: 065
  6. NEXIUM [Concomitant]
     Route: 065
  7. ZANTAC [Concomitant]
     Route: 065
  8. MAXERAN [Concomitant]
     Route: 065
  9. ALL OTHER THERAPEUTICS [Concomitant]
     Route: 065
  10. VITAMIN D [Concomitant]
     Route: 065
  11. B12 [Concomitant]
     Route: 065
  12. ACIDOPHILUS [Concomitant]
     Route: 065

REACTIONS (9)
  - Oxygen saturation decreased [Recovered/Resolved]
  - Infusion related reaction [Recovered/Resolved]
  - Pharyngeal oedema [Recovered/Resolved]
  - Dyspnoea [Unknown]
  - Oedema peripheral [Unknown]
  - Dizziness [Recovered/Resolved]
  - Erythema [Recovered/Resolved]
  - Adverse drug reaction [Recovered/Resolved]
  - Pyrexia [Unknown]
